FAERS Safety Report 14925596 (Version 4)
Quarter: 2024Q3

REPORT INFORMATION
  Report Type: Spontaneous
  Country: FR (occurrence: FR)
  Receive Date: 20180522
  Receipt Date: 20240912
  Transmission Date: 20241017
  Serious: Yes (Other)
  Sender: BAUSCH AND LOMB
  Company Number: None

PATIENT
  Age: 1 Day
  Sex: Male
  Weight: 1.89 kg

DRUGS (49)
  1. METFORMIN HYDROCHLORIDE [Suspect]
     Active Substance: METFORMIN HYDROCHLORIDE
     Indication: Type 2 diabetes mellitus
     Dosage: 850 MG, QD
     Route: 064
     Dates: start: 20160930, end: 20170224
  2. METFORMIN HYDROCHLORIDE [Suspect]
     Active Substance: METFORMIN HYDROCHLORIDE
     Dosage: 1700 MG DAILY
     Route: 064
     Dates: start: 20170804
  3. METFORMIN HYDROCHLORIDE [Suspect]
     Active Substance: METFORMIN HYDROCHLORIDE
     Dosage: 1700 MG, QD
     Route: 064
     Dates: start: 20160930, end: 20170224
  4. METFORMIN HYDROCHLORIDE [Suspect]
     Active Substance: METFORMIN HYDROCHLORIDE
     Dosage: 850MG DAILY
     Route: 064
     Dates: start: 20170224
  5. RAMIPRIL [Suspect]
     Active Substance: RAMIPRIL
     Indication: Hypertension
     Dosage: 2.5 MG, QD
     Route: 064
     Dates: start: 20160930, end: 20170224
  6. LEVEMIR [Suspect]
     Active Substance: INSULIN DETEMIR
     Indication: Type 2 diabetes mellitus
     Route: 064
     Dates: start: 20160930, end: 20170224
  7. ARIPIPRAZOLE [Suspect]
     Active Substance: ARIPIPRAZOLE
     Indication: Bipolar I disorder
     Dosage: 10 MG, QD
     Route: 064
     Dates: start: 20160930, end: 20170224
  8. NICARDIPINE [Suspect]
     Active Substance: NICARDIPINE
     Indication: Hypertension
     Dosage: 50MG FORM LP X2/DAY
     Route: 064
     Dates: start: 20170405, end: 20170914
  9. NICARDIPINE [Suspect]
     Active Substance: NICARDIPINE
     Route: 064
     Dates: start: 20170313
  10. LANTUS [Suspect]
     Active Substance: INSULIN GLARGINE
     Indication: Type 2 diabetes mellitus
     Dosage: 20 IU, QD
     Route: 064
     Dates: start: 20170224, end: 20170914
  11. FERROUS SULFATE [Suspect]
     Active Substance: FERROUS SULFATE
     Indication: Normochromic normocytic anaemia
     Route: 064
     Dates: start: 20170313, end: 20170914
  12. AMITRIPTYLINE HYDROCHLORIDE [Suspect]
     Active Substance: AMITRIPTYLINE HYDROCHLORIDE
     Indication: Diabetic neuropathy
     Dosage: 2 DF, QD
     Route: 064
     Dates: start: 20160930, end: 20170714
  13. FUROSEMIDE [Suspect]
     Active Substance: FUROSEMIDE
     Indication: Hypertension
     Dosage: 40 MG, UNK (SCORED TABLET)
     Route: 064
     Dates: start: 20170516
  14. FUROSEMIDE [Suspect]
     Active Substance: FUROSEMIDE
     Dosage: SCORED TABLET
     Route: 064
     Dates: start: 201705
  15. HUMALOG [Suspect]
     Active Substance: INSULIN LISPRO
     Indication: Type 2 diabetes mellitus
     Route: 064
     Dates: start: 20170224, end: 20170224
  16. AMOXICILLIN [Suspect]
     Active Substance: AMOXICILLIN
     Indication: Product used for unknown indication
     Route: 064
     Dates: start: 20170804, end: 20170811
  17. AMOXICILLIN [Suspect]
     Active Substance: AMOXICILLIN
     Route: 064
     Dates: start: 20170804, end: 20170914
  18. FOLIC ACID [Suspect]
     Active Substance: FOLIC ACID
     Indication: Normochromic normocytic anaemia
     Route: 064
     Dates: start: 20170313
  19. FOLIC ACID [Suspect]
     Active Substance: FOLIC ACID
     Route: 064
     Dates: start: 20170224, end: 20170313
  20. GLICLAZIDE [Suspect]
     Active Substance: GLICLAZIDE
     Indication: Type 2 diabetes mellitus
     Route: 064
     Dates: start: 20160930, end: 20170224
  21. METHYLDOPA [Suspect]
     Active Substance: METHYLDOPA
     Indication: Hypertension
     Dosage: 1500 MG, QD
     Route: 064
     Dates: start: 20170720
  22. POTASSIUM CHLORIDE [Suspect]
     Active Substance: POTASSIUM CHLORIDE
     Indication: Hypokalaemia
     Dosage: 3600 MG, QD 1200 MG, QD (2 TO 3 TIMES PER DAY)
     Route: 064
     Dates: start: 20170804
  23. POLYETHYLENE GLYCOL 4000 [Suspect]
     Active Substance: POLYETHYLENE GLYCOL 4000
     Indication: Constipation
     Dosage: 1 DF, QD
     Route: 064
     Dates: start: 20160930, end: 20170405
  24. POLYETHYLENE GLYCOL 4000 [Suspect]
     Active Substance: POLYETHYLENE GLYCOL 4000
     Dosage: 120 MG, DAILY
     Route: 064
     Dates: start: 20160930, end: 20170224
  25. NICOPATCH [Suspect]
     Active Substance: NICOTINE
     Indication: Ex-tobacco user
     Route: 064
     Dates: start: 20170224, end: 20170516
  26. NICARDIPINE HYDROCHLORIDE [Suspect]
     Active Substance: NICARDIPINE HYDROCHLORIDE
     Indication: Hypertension
     Dosage: UNK (50MG FORME LP X2/J)
     Route: 064
     Dates: start: 20170313, end: 20170405
  27. NICARDIPINE HYDROCHLORIDE [Suspect]
     Active Substance: NICARDIPINE HYDROCHLORIDE
     Dosage: UNK (50MG FORME LP X2/J)
     Route: 064
     Dates: start: 20170516
  28. NICARDIPINE HYDROCHLORIDE [Suspect]
     Active Substance: NICARDIPINE HYDROCHLORIDE
     Dosage: 50 MG, 2X/DAY
     Route: 064
     Dates: start: 20170405
  29. CHLORPROMAZINE [Suspect]
     Active Substance: CHLORPROMAZINE
     Indication: Bipolar I disorder
     Dosage: SCORED
     Route: 064
     Dates: start: 20170720
  30. CHLORPROMAZINE [Suspect]
     Active Substance: CHLORPROMAZINE
     Dosage: SCORED
     Route: 064
  31. GABAPENTIN [Suspect]
     Active Substance: GABAPENTIN
     Indication: Diabetic neuropathy
     Dosage: 800 MG, QD
     Route: 064
     Dates: start: 20160930
  32. LABETALOL HYDROCHLORIDE [Suspect]
     Active Substance: LABETALOL\LABETALOL HYDROCHLORIDE
     Indication: Hypertension
     Route: 064
     Dates: start: 20170516, end: 20170914
  33. TRAMADOL HYDROCHLORIDE [Suspect]
     Active Substance: TRAMADOL HYDROCHLORIDE
     Indication: Diabetic neuropathy
     Route: 064
     Dates: start: 20160930, end: 20170306
  34. TRAMADOL HYDROCHLORIDE [Suspect]
     Active Substance: TRAMADOL HYDROCHLORIDE
     Route: 064
     Dates: start: 20160930, end: 20170306
  35. FOLIC ACID [Suspect]
     Active Substance: FOLIC ACID
     Indication: Normochromic normocytic anaemia
     Route: 064
     Dates: start: 20170224, end: 20170914
  36. FOLIC ACID [Suspect]
     Active Substance: FOLIC ACID
     Route: 064
     Dates: start: 20170224, end: 20170313
  37. FOLIC ACID [Suspect]
     Active Substance: FOLIC ACID
     Route: 064
     Dates: start: 20170313, end: 20170914
  38. LEUCOVORIN [Suspect]
     Active Substance: LEUCOVORIN\LEUCOVORIN CALCIUM
     Indication: Normochromic normocytic anaemia
     Route: 064
     Dates: start: 20170224, end: 20170313
  39. INSULIN PORK\INSULIN PURIFIED PORK [Suspect]
     Active Substance: INSULIN PORK\INSULIN PURIFIED PORK
     Indication: Type 2 diabetes mellitus
     Dosage: INSULIN
     Route: 064
     Dates: start: 20161230, end: 20170224
  40. PROPRANOLOL HYDROCHLORIDE [Suspect]
     Active Substance: PROPRANOLOL HYDROCHLORIDE
     Indication: Hypertension
     Route: 064
     Dates: start: 20170516
  41. PROPRANOLOL HYDROCHLORIDE [Suspect]
     Active Substance: PROPRANOLOL HYDROCHLORIDE
     Indication: Hypertension
     Route: 064
     Dates: start: 20170720
  42. PROPRANOLOL HYDROCHLORIDE [Suspect]
     Active Substance: PROPRANOLOL HYDROCHLORIDE
     Route: 064
     Dates: start: 20170516
  43. FERROUS SULFATE [Suspect]
     Active Substance: FERROUS SULFATE
     Indication: Normochromic normocytic anaemia
     Dosage: 1 DF, 1X/DAY
     Route: 064
     Dates: start: 20170313, end: 20170914
  44. AMITRIPTYLINE HYDROCHLORIDE [Suspect]
     Active Substance: AMITRIPTYLINE HYDROCHLORIDE
     Indication: Diabetic neuropathy
     Dosage: 2 DF, QD
     Route: 064
     Dates: start: 20160930, end: 20170914
  45. LEUCOVORIN CALCIUM [Suspect]
     Active Substance: LEUCOVORIN CALCIUM
     Indication: Normochromic normocytic anaemia
     Dosage: 5 MG, DAILY
     Route: 064
     Dates: start: 20170224, end: 20170313
  46. INSULIN LISPRO [Suspect]
     Active Substance: INSULIN LISPRO
     Indication: Type 2 diabetes mellitus
     Dosage: 21 UG/M2, QD
     Route: 064
     Dates: start: 20170224, end: 20170224
  47. INSULIN LISPRO [Suspect]
     Active Substance: INSULIN LISPRO
     Dosage: 7 UG/M2, DAILY
     Route: 064
     Dates: start: 20170224
  48. CHLORPROMAZINE HYDROCHLORIDE [Suspect]
     Active Substance: CHLORPROMAZINE HYDROCHLORIDE
     Indication: Product used for unknown indication
     Route: 064
     Dates: start: 20170720
  49. INSULIN NOS [Suspect]
     Active Substance: INSULIN NOS
     Indication: Type 2 diabetes mellitus
     Route: 064
     Dates: start: 20161230, end: 20180224

REACTIONS (5)
  - Neutropenia [Not Recovered/Not Resolved]
  - Foetal disorder [Unknown]
  - Premature baby [Recovered/Resolved]
  - Low birth weight baby [Unknown]
  - Foetal exposure during pregnancy [Unknown]

NARRATIVE: CASE EVENT DATE: 20170914
